FAERS Safety Report 11913204 (Version 2)
Quarter: 2017Q1

REPORT INFORMATION
  Report Type: Spontaneous
  Country: US (occurrence: US)
  Receive Date: 20160113
  Receipt Date: 20170109
  Transmission Date: 20170428
  Serious: Yes (Other)
  Sender: FDA-Public Use
  Company Number: US-GLAXOSMITHKLINE-US2016GSK003057

PATIENT
  Sex: Female

DRUGS (1)
  1. BENLYSTA [Suspect]
     Active Substance: BELIMUMAB
     Indication: SYSTEMIC LUPUS ERYTHEMATOSUS
     Dosage: UNK, U

REACTIONS (7)
  - Eye haemorrhage [Unknown]
  - Malaise [Unknown]
  - Oropharyngeal pain [Unknown]
  - Headache [Unknown]
  - Haemorrhage [Unknown]
  - Contusion [Unknown]
  - White blood cell count decreased [Unknown]
